FAERS Safety Report 8001787-1 (Version None)
Quarter: 2011Q4

REPORT INFORMATION
  Report Type: 
  Country: None (occurrence: None)
  Receive Date: 20111123
  Receipt Date: 20111014
  Transmission Date: 20120403
  Serious: No
  Sender: FDA-Public Use
  Company Number: 336300

PATIENT
  Age: 48 Year
  Sex: Female

DRUGS (4)
  1. VICTOZA [Suspect]
     Indication: TYPE 2 DIABETES MELLITUS
     Dosage: SUBCUTANEOUS
     Route: 058
  2. VICTOZA [Suspect]
     Indication: WEIGHT CONTROL
     Dosage: SUBCUTANEOUS
     Route: 058
  3. ACTOS [Concomitant]
  4. GLIPIZIDE [Concomitant]

REACTIONS (5)
  - VISION BLURRED [None]
  - STRESS [None]
  - SWELLING [None]
  - BLOOD GLUCOSE INCREASED [None]
  - PAIN [None]
